FAERS Safety Report 9648673 (Version 1)
Quarter: 2013Q4

REPORT INFORMATION
  Report Type: Spontaneous
  Country: US (occurrence: US)
  Receive Date: 20131028
  Receipt Date: 20131028
  Transmission Date: 20140711
  Serious: Yes (Other)
  Sender: FDA-Public Use
  Company Number: US-PFIZER INC-2013303509

PATIENT
  Sex: Female

DRUGS (1)
  1. TOVIAZ [Suspect]
     Dosage: UNK

REACTIONS (7)
  - Nephrolithiasis [Unknown]
  - Musculoskeletal disorder [Unknown]
  - Arthritis [Unknown]
  - Eye disorder [Unknown]
  - Hypertonic bladder [Unknown]
  - Back disorder [Unknown]
  - Dry mouth [Unknown]
